FAERS Safety Report 24387590 (Version 1)
Quarter: 2024Q4

REPORT INFORMATION
  Report Type: Spontaneous
  Country: US (occurrence: None)
  Receive Date: 20241001
  Receipt Date: 20241001
  Transmission Date: 20250114
  Serious: Yes (Hospitalization)
  Sender: Public
  Company Number: None

PATIENT
  Age: 79 Year
  Sex: Male
  Weight: 51 kg

DRUGS (1)
  1. EMPAGLIFLOZIN [Suspect]
     Active Substance: EMPAGLIFLOZIN
     Indication: Cardiac failure congestive
     Dosage: 12.50 MG DAILY ORAL?
     Route: 048

REACTIONS (3)
  - Urinary tract infection [None]
  - Urinary retention [None]
  - Device related infection [None]

NARRATIVE: CASE EVENT DATE: 20231204
